FAERS Safety Report 24360401 (Version 4)
Quarter: 2024Q4

REPORT INFORMATION
  Report Type: Spontaneous
  Country: FR (occurrence: FR)
  Receive Date: 20240925
  Receipt Date: 20241115
  Transmission Date: 20250115
  Serious: Yes (Other)
  Sender: AUROBINDO
  Company Number: FR-TILLOMEDPR-2024-EPL-004900

PATIENT
  Age: 43 Year
  Sex: Female

DRUGS (38)
  1. CLARITHROMYCIN [Suspect]
     Active Substance: CLARITHROMYCIN
     Indication: Cytomegalovirus chorioretinitis
     Dosage: UNK
     Route: 065
  2. CLARITHROMYCIN [Suspect]
     Active Substance: CLARITHROMYCIN
     Indication: HIV infection
  3. CLARITHROMYCIN [Suspect]
     Active Substance: CLARITHROMYCIN
     Indication: Disseminated mycobacterium avium complex infection
  4. CLARITHROMYCIN [Suspect]
     Active Substance: CLARITHROMYCIN
     Indication: Pneumocystis jirovecii pneumonia
  5. LEVOFLOXACIN [Suspect]
     Active Substance: LEVOFLOXACIN
     Indication: Cytomegalovirus chorioretinitis
     Dosage: UNK
     Route: 065
  6. LEVOFLOXACIN [Suspect]
     Active Substance: LEVOFLOXACIN
     Indication: Disseminated mycobacterium avium complex infection
  7. LEVOFLOXACIN [Suspect]
     Active Substance: LEVOFLOXACIN
     Indication: Pneumocystis jirovecii pneumonia
  8. LEVOFLOXACIN [Suspect]
     Active Substance: LEVOFLOXACIN
     Indication: HIV infection
  9. VALGANCICLOVIR [Suspect]
     Active Substance: VALGANCICLOVIR
     Indication: Cytomegalovirus chorioretinitis
     Dosage: 900 MILLIGRAM, TWO TIMES A DAY
     Route: 065
  10. VALGANCICLOVIR [Suspect]
     Active Substance: VALGANCICLOVIR
     Dosage: 900 MILLIGRAM, TWO TIMES A DAY
     Route: 065
  11. VALGANCICLOVIR [Suspect]
     Active Substance: VALGANCICLOVIR
     Dosage: 900 MILLIGRAM, ONCE A DAY
     Route: 065
  12. VALGANCICLOVIR [Suspect]
     Active Substance: VALGANCICLOVIR
     Dosage: 1800 MILLIGRAM, ONCE A DAY
     Route: 065
  13. BIKTARVY [Suspect]
     Active Substance: BICTEGRAVIR SODIUM\EMTRICITABINE\TENOFOVIR ALAFENAMIDE FUMARATE
     Indication: HIV viraemia
     Dosage: UNK
     Route: 065
  14. BIKTARVY [Suspect]
     Active Substance: BICTEGRAVIR SODIUM\EMTRICITABINE\TENOFOVIR ALAFENAMIDE FUMARATE
     Indication: HIV infection
  15. BIKTARVY [Suspect]
     Active Substance: BICTEGRAVIR SODIUM\EMTRICITABINE\TENOFOVIR ALAFENAMIDE FUMARATE
     Indication: Cytomegalovirus chorioretinitis
  16. BIKTARVY [Suspect]
     Active Substance: BICTEGRAVIR SODIUM\EMTRICITABINE\TENOFOVIR ALAFENAMIDE FUMARATE
     Indication: Disseminated mycobacterium avium complex infection
  17. BIKTARVY [Suspect]
     Active Substance: BICTEGRAVIR SODIUM\EMTRICITABINE\TENOFOVIR ALAFENAMIDE FUMARATE
     Indication: Pneumocystis jirovecii pneumonia
  18. CIDOFOVIR [Suspect]
     Active Substance: CIDOFOVIR
     Indication: Cytomegalovirus chorioretinitis
     Dosage: UNK
     Route: 042
  19. CIDOFOVIR [Suspect]
     Active Substance: CIDOFOVIR
     Dosage: UNK
     Route: 042
  20. CIDOFOVIR [Suspect]
     Active Substance: CIDOFOVIR
     Dosage: 1 DOSAGE FORM, EVERY WEEK
     Route: 042
  21. CIDOFOVIR [Suspect]
     Active Substance: CIDOFOVIR
     Dosage: 1 DOSAGE FORM, EVERY 2 WEEKS
     Route: 042
  22. CIDOFOVIR [Suspect]
     Active Substance: CIDOFOVIR
     Dosage: 2 DOSAGE FORM, EVERY WEEK
     Route: 042
  23. CIDOFOVIR [Suspect]
     Active Substance: CIDOFOVIR
     Dosage: 250 MILLIGRAM, EVERY WEEK
     Route: 042
  24. CIDOFOVIR [Suspect]
     Active Substance: CIDOFOVIR
     Dosage: 250 MILLIGRAM
     Route: 042
  25. COTRIMOXAZOLE [Suspect]
     Active Substance: SULFAMETHOXAZOLE\TRIMETHOPRIM
     Indication: Cytomegalovirus chorioretinitis
     Dosage: UNK
     Route: 065
  26. COTRIMOXAZOLE [Suspect]
     Active Substance: SULFAMETHOXAZOLE\TRIMETHOPRIM
     Indication: HIV infection
  27. COTRIMOXAZOLE [Suspect]
     Active Substance: SULFAMETHOXAZOLE\TRIMETHOPRIM
     Indication: Disseminated mycobacterium avium complex infection
  28. COTRIMOXAZOLE [Suspect]
     Active Substance: SULFAMETHOXAZOLE\TRIMETHOPRIM
     Indication: Pneumocystis jirovecii pneumonia
  29. ETHAMBUTOL [Suspect]
     Active Substance: ETHAMBUTOL HYDROCHLORIDE
     Indication: Cytomegalovirus chorioretinitis
     Dosage: UNK
     Route: 065
  30. ETHAMBUTOL [Suspect]
     Active Substance: ETHAMBUTOL HYDROCHLORIDE
     Indication: Disseminated mycobacterium avium complex infection
  31. FOSCARNET [Suspect]
     Active Substance: FOSCARNET
     Indication: Cytomegalovirus chorioretinitis
     Dosage: 90 MILLIGRAM/KILOGRAM, TWO TIMES A DAY
     Route: 065
  32. GANCICLOVIR [Suspect]
     Active Substance: GANCICLOVIR
     Indication: Cytomegalovirus chorioretinitis
     Dosage: UNK
  33. GANCICLOVIR [Suspect]
     Active Substance: GANCICLOVIR
     Dosage: 7.5 MILLIGRAM/KILOGRAM, TWO TIMES A DAY
     Route: 065
  34. GANCICLOVIR [Suspect]
     Active Substance: GANCICLOVIR
     Dosage: 5 MILLIGRAM/KILOGRAM, TWO TIMES A DAY
     Route: 065
  35. HUMAN CYTOMEGALOVIRUS IMMUNE GLOBULIN [Suspect]
     Active Substance: HUMAN CYTOMEGALOVIRUS IMMUNE GLOBULIN
     Indication: Cytomegalovirus chorioretinitis
     Dosage: 400 INTERNATIONAL UNIT/KILOGRAM
     Route: 065
  36. HUMAN CYTOMEGALOVIRUS IMMUNE GLOBULIN [Suspect]
     Active Substance: HUMAN CYTOMEGALOVIRUS IMMUNE GLOBULIN
     Dosage: 2000 INTERNATIONAL UNIT/KILOGRAM
     Route: 042
  37. LETERMOVIR [Suspect]
     Active Substance: LETERMOVIR
     Indication: Cytomegalovirus chorioretinitis
     Dosage: 480 MILLIGRAM, ONCE A DAY
     Route: 065
  38. LETERMOVIR [Suspect]
     Active Substance: LETERMOVIR
     Indication: Prophylaxis

REACTIONS (5)
  - Multiple-drug resistance [Unknown]
  - Pancytopenia [Unknown]
  - Drug ineffective [Unknown]
  - Drug resistance [Unknown]
  - Off label use [Unknown]
